FAERS Safety Report 25498168 (Version 2)
Quarter: 2025Q3

REPORT INFORMATION
  Report Type: Spontaneous
  Country: EU (occurrence: EU)
  Receive Date: 20250701
  Receipt Date: 20250807
  Transmission Date: 20251021
  Serious: Yes (Hospitalization, Other)
  Sender: AUROBINDO
  Company Number: EU-THEA-2025001502

PATIENT
  Age: 7 Year
  Sex: Male

DRUGS (2)
  1. CETIRIZINE [Suspect]
     Active Substance: CETIRIZINE HYDROCHLORIDE
     Indication: Vernal keratoconjunctivitis
     Dosage: 10 DROP, ONCE A DAY
     Route: 048
  2. KETOTIFEN [Suspect]
     Active Substance: KETOTIFEN
     Indication: Vernal keratoconjunctivitis
     Dosage: 1 DOSAGE FORM, TWO TIMES A DAY

REACTIONS (3)
  - Dry eye [Unknown]
  - Drug ineffective [Unknown]
  - Product use in unapproved indication [Unknown]
